FAERS Safety Report 7978044-2 (Version None)
Quarter: 2011Q4

REPORT INFORMATION
  Report Type: 
  Country: None (occurrence: None)
  Receive Date: 20111214
  Receipt Date: 20100128
  Transmission Date: 20120403
  Serious: No
  Sender: FDA-Public Use
  Company Number: 2010BI003852

PATIENT
  Age: 52 Year
  Sex: Female

DRUGS (2)
  1. REBIF [Concomitant]
     Indication: MULTIPLE SCLEROSIS
  2. TYSABRI [Suspect]
     Indication: MULTIPLE SCLEROSIS
     Route: 042
     Dates: start: 20080814, end: 20111001

REACTIONS (3)
  - MUSCULOSKELETAL STIFFNESS [None]
  - FATIGUE [None]
  - OEDEMA PERIPHERAL [None]
